FAERS Safety Report 18320693 (Version 1)
Quarter: 2020Q3

REPORT INFORMATION
  Report Type: Spontaneous
  Country: US (occurrence: US)
  Receive Date: 20200928
  Receipt Date: 20200928
  Transmission Date: 20201103
  Serious: Yes (Death)
  Sender: FDA-Public Use
  Company Number: US-PFIZER INC-2016015862

PATIENT
  Age: 56 Year
  Sex: Male
  Weight: 136 kg

DRUGS (2)
  1. LYRICA [Suspect]
     Active Substance: PREGABALIN
     Indication: SPINAL OSTEOARTHRITIS
     Dosage: 150 MG, 2X/DAY
  2. LYRICA [Suspect]
     Active Substance: PREGABALIN
     Indication: SPONDYLOLISTHESIS
     Dosage: 100 MG, 2X/DAY,(SIG: TAKE 1 CAPSULE (100 MG TOTAL) BY MOUTH 2 (TWO) TIMES A DAY.)
     Route: 048

REACTIONS (1)
  - Death [Fatal]
